FAERS Safety Report 7650881-3 (Version None)
Quarter: 2011Q3

REPORT INFORMATION
  Report Type: 
  Country: None (occurrence: None)
  Receive Date: 20110802
  Receipt Date: 20110727
  Transmission Date: 20111222
  Serious: Yes (Life-Threatening, Hospitalization, Other)
  Sender: FDA-Public Use
  Company Number: US-CELGENEUS-163-21880-11063578

PATIENT
  Sex: Male

DRUGS (15)
  1. MULTIPLE VITAMINS [Concomitant]
     Route: 065
  2. REGLAN [Concomitant]
     Dosage: 10 MILLIGRAM
     Route: 065
  3. REVLIMID [Suspect]
     Indication: MULTIPLE MYELOMA
     Dosage: 15 MILLIGRAM
     Route: 048
     Dates: start: 20100629, end: 20110627
  4. GLUCOSAMINE [Concomitant]
     Dosage: 1500 MILLIGRAM
     Route: 065
  5. DECADRON [Concomitant]
  6. SIMVASTATIN [Concomitant]
     Dosage: 40 MILLIGRAM
     Route: 065
  7. ACYCLOVIR [Concomitant]
     Dosage: 400 MILLIGRAM
     Route: 065
  8. AMIODARONE HCL [Concomitant]
     Dosage: 200 MILLIGRAM
     Route: 065
  9. COUMADIN [Concomitant]
     Dosage: 2.5 MILLIGRAM
     Route: 065
  10. AVODART [Concomitant]
     Dosage: 5 MILLIGRAM
     Route: 065
  11. ASPIRIN [Concomitant]
     Dosage: 325 MILLIGRAM
     Route: 065
  12. LYRICA [Concomitant]
     Route: 065
  13. ZOCOR [Concomitant]
     Indication: BLOOD CHOLESTEROL INCREASED
     Route: 065
  14. FOLIC ACID [Concomitant]
     Dosage: 1 MILLIGRAM
     Route: 065
  15. DEXILANT [Concomitant]
     Dosage: 60 MILLIGRAM
     Route: 065

REACTIONS (2)
  - VENTRICULAR TACHYCARDIA [None]
  - EXTRASYSTOLES [None]
